FAERS Safety Report 15460096 (Version 4)
Quarter: 2019Q1

REPORT INFORMATION
  Report Type: Spontaneous
  Country: US (occurrence: US)
  Receive Date: 20181003
  Receipt Date: 20190128
  Transmission Date: 20190417
  Serious: Yes (Hospitalization, Other)
  Sender: FDA-Public Use
  Company Number: US-SA-2018SA272541

PATIENT
  Age: 48 Year
  Sex: Male
  Weight: 84.82 kg

DRUGS (32)
  1. FLUTICASONE. [Concomitant]
     Active Substance: FLUTICASONE
     Dosage: 1 DF (SPRAY) DAILY AS NEEDED
     Route: 045
     Dates: start: 20171026
  2. ARAVA [Concomitant]
     Active Substance: LEFLUNOMIDE
     Dosage: 40 MG, QD
     Route: 048
     Dates: start: 20161031
  3. FENOFIBRATE. [Concomitant]
     Active Substance: FENOFIBRATE
     Dosage: 1 DF, QD
     Route: 048
     Dates: start: 20151202
  4. LORATADINE. [Concomitant]
     Active Substance: LORATADINE
     Dosage: 1 DF, QD
     Route: 048
     Dates: start: 20151202
  5. ZOLOFT [Concomitant]
     Active Substance: SERTRALINE HYDROCHLORIDE
     Dosage: 1.5 DF, QD
     Route: 048
     Dates: start: 20180507
  6. PREDNISONE. [Concomitant]
     Active Substance: PREDNISONE
     Dosage: 1 DF, QD
     Route: 048
     Dates: start: 20151202
  7. LMX [LIDOCAINE] [Concomitant]
     Dosage: 4 %, QD
     Route: 061
     Dates: start: 20100312
  8. DIPHENHYDRAMINE. [Concomitant]
     Active Substance: DIPHENHYDRAMINE
     Indication: ANAPHYLACTIC REACTION
     Dosage: 50 MG, PRN
     Route: 048
     Dates: start: 20100312
  9. CYANOCOBALAMIN. [Concomitant]
     Active Substance: CYANOCOBALAMIN
     Dosage: 1 ML, QW
     Route: 030
     Dates: start: 20170525
  10. TESTOSTERONE. [Concomitant]
     Active Substance: TESTOSTERONE
     Dosage: 0.75 ML, QOW
     Route: 030
     Dates: start: 20170525
  11. FUROSEMIDE. [Concomitant]
     Active Substance: FUROSEMIDE
     Dosage: 1 DF, DAILY PRN
     Route: 048
     Dates: start: 20170413
  12. PSYLLIUM FIBRE [Concomitant]
     Dosage: 1 DF, BID
     Route: 048
     Dates: start: 20170413
  13. MELATONIN [Concomitant]
     Active Substance: MELATONIN
     Dosage: 1 DF, AT BEDTIME PRN
     Route: 048
     Dates: start: 20170413
  14. PARICALCITOL. [Concomitant]
     Active Substance: PARICALCITOL
     Dosage: 1 DF, QD
     Route: 048
     Dates: start: 20161031
  15. VITAMIN D3 [Concomitant]
     Active Substance: CHOLECALCIFEROL
     Dosage: 1 DF, QD
     Route: 048
     Dates: start: 20170413
  16. GABAPENTIN. [Concomitant]
     Active Substance: GABAPENTIN
     Dosage: 2 DF, BID
     Route: 048
     Dates: start: 20170302
  17. PROGRAF [Concomitant]
     Active Substance: TACROLIMUS\TACROLIMUS ANHYDROUS
     Dosage: 1 DF, QD
     Route: 048
     Dates: start: 20170216
  18. EPINEPHRINE. [Concomitant]
     Active Substance: EPINEPHRINE
     Indication: ANAPHYLACTIC REACTION
     Dosage: 0.3 MG, PRN
     Route: 030
     Dates: start: 20170524
  19. MUPIROCIN. [Concomitant]
     Active Substance: MUPIROCIN
     Dosage: 1 APPLICATION, QD
     Route: 061
     Dates: start: 20181023
  20. ASPIRIN [ACETYLSALICYLIC ACID] [Concomitant]
     Active Substance: ASPIRIN
     Dosage: 1 DF, QD
     Route: 048
     Dates: start: 20170413
  21. DHEA [Concomitant]
     Active Substance: PRASTERONE
     Dosage: 2 DF, QD
     Route: 048
     Dates: start: 20170413
  22. SYNTHROID [Concomitant]
     Active Substance: LEVOTHYROXINE SODIUM
     Dosage: 1 DF, QD
     Route: 048
     Dates: start: 20161012
  23. LOPERAMIDE [Concomitant]
     Active Substance: LOPERAMIDE
     Dosage: 1 DF, BID
     Route: 048
     Dates: start: 20180927
  24. LIDOCAINE. [Concomitant]
     Active Substance: LIDOCAINE
     Indication: PREMEDICATION
     Dosage: 4 %, QD
     Route: 061
     Dates: start: 20171207
  25. NORMAL SALINE [Concomitant]
     Active Substance: SODIUM CHLORIDE
     Indication: FLUSHING
     Dosage: 0.9 %, QD
     Route: 042
     Dates: start: 20101111
  26. STERILE WATER [Concomitant]
     Active Substance: WATER
     Dosage: 1 DF AS DIRECTED
     Route: 042
     Dates: start: 20171207
  27. MUPIROCIN. [Concomitant]
     Active Substance: MUPIROCIN
     Dosage: 1 DF, TID
     Route: 061
     Dates: start: 20170626
  28. FABRAZYME [Suspect]
     Active Substance: AGALSIDASE BETA
     Indication: FABRY^S DISEASE
     Dosage: 1.01 MG/KG, QOW
     Route: 041
     Dates: start: 20100308
  29. FABRAZYME [Suspect]
     Active Substance: AGALSIDASE BETA
     Indication: LIPIDOSIS
     Dosage: 1.002 MG, QOW
     Route: 041
  30. HEPARIN [Concomitant]
     Active Substance: HEPARIN SODIUM
     Indication: FLUSHING
     Dosage: 100U N/ML AS DIRECTED
     Route: 042
     Dates: start: 20171207
  31. PROBIOTIC [BIFIDOBACTERIUM BIFIDUM;BIFIDOBACTERIUM LACTIS;BIFIDOBACTER [Concomitant]
     Dosage: 1 DF, QD
     Route: 048
     Dates: start: 20170413
  32. SUPER B COMPLEX [AMINOBENZOIC ACID;BIOTIN;CALCIUM PANTOTHENATE;CHOLINE [Concomitant]
     Dosage: 1 DF, QD
     Route: 048
     Dates: start: 20170302

REACTIONS (4)
  - Confusional state [Unknown]
  - Wound infection [Unknown]
  - Balance disorder [Unknown]
  - Localised infection [Unknown]
